FAERS Safety Report 19158801 (Version 2)
Quarter: 2021Q2

REPORT INFORMATION
  Report Type: Spontaneous
  Country: US (occurrence: US)
  Receive Date: 20210420
  Receipt Date: 20210503
  Transmission Date: 20210717
  Serious: Yes (Other)
  Sender: FDA-Public Use
  Company Number: US-ORGANON-O2104USA001496

PATIENT
  Age: 29 Year
  Sex: Female
  Weight: 89.81 kg

DRUGS (1)
  1. NEXPLANON [Suspect]
     Active Substance: ETONOGESTREL
     Dosage: 1 IMPLANT, IN LEFT ARM
     Route: 059
     Dates: start: 20180427

REACTIONS (4)
  - Obesity [Unknown]
  - Weight decreased [Unknown]
  - Metabolic surgery [Unknown]
  - Complication associated with device [Unknown]
